FAERS Safety Report 13274505 (Version 1)
Quarter: 2017Q1

REPORT INFORMATION
  Report Type: Spontaneous
  Country: US (occurrence: US)
  Receive Date: 20170227
  Receipt Date: 20170227
  Transmission Date: 20170428
  Serious: No
  Sender: FDA-Public Use
  Company Number: US-009507513-1702USA004952

PATIENT
  Sex: Female

DRUGS (1)
  1. NUVARING [Suspect]
     Active Substance: ETHINYL ESTRADIOL\ETONOGESTREL
     Dosage: ^3 WEEKS INSIDE THE VAGINA THEN 1 WEEK BREAK^
     Route: 067

REACTIONS (2)
  - Wrong technique in product usage process [Unknown]
  - Device expulsion [Recovered/Resolved]
